FAERS Safety Report 9946264 (Version 2)
Quarter: 2014Q1

REPORT INFORMATION
  Report Type: Spontaneous
  Country: US (occurrence: US)
  Receive Date: 20140303
  Receipt Date: 20140303
  Transmission Date: 20141002
  Serious: No
  Sender: FDA-Public Use
  Company Number: US-AMGEN-USASP2013090897

PATIENT
  Age: 68 Year
  Sex: Female

DRUGS (9)
  1. ENBREL [Suspect]
     Indication: PSORIATIC ARTHROPATHY
     Dosage: 50 MG, 2 TIMES/WK
     Route: 058
     Dates: start: 20091010, end: 20100111
  2. ENBREL [Suspect]
     Indication: PSORIASIS
  3. REMICADE [Concomitant]
     Dosage: UNK
     Route: 065
  4. SIMPONI [Concomitant]
     Dosage: UNK
     Route: 065
  5. STELARA [Concomitant]
     Dosage: UNK
     Route: 065
  6. ALLEGRA [Concomitant]
     Indication: HYPERSENSITIVITY
     Dosage: UNK
     Route: 048
  7. DIOVANE [Concomitant]
     Indication: HYPERTENSION
     Dosage: UNK
     Route: 048
  8. SINGULAIR [Concomitant]
     Indication: ARTHRITIS
     Route: 048
  9. SYNTHROID [Concomitant]
     Indication: HYPOTHYROIDISM
     Dosage: UNK
     Route: 048

REACTIONS (7)
  - Skin exfoliation [Not Recovered/Not Resolved]
  - Adverse event [Not Recovered/Not Resolved]
  - Rash generalised [Recovered/Resolved]
  - Pruritus [Not Recovered/Not Resolved]
  - Adverse drug reaction [Recovered/Resolved]
  - Drug ineffective [Unknown]
  - Psoriasis [Recovered/Resolved]
